FAERS Safety Report 10790319 (Version 2)
Quarter: 2015Q1

REPORT INFORMATION
  Report Type: Spontaneous
  Country: US (occurrence: US)
  Receive Date: 20150212
  Receipt Date: 20150323
  Transmission Date: 20150721
  Serious: Yes (Other)
  Sender: FDA-Public Use
  Company Number: US-LUNDBECK-DKLU1107657

PATIENT
  Age: 82 Year
  Sex: Male

DRUGS (3)
  1. NORTHERA [Suspect]
     Active Substance: DROXIDOPA
     Indication: ORTHOSTATIC HYPOTENSION
  2. NORTHERA [Suspect]
     Active Substance: DROXIDOPA
     Indication: MULTIPLE SCLEROSIS
     Route: 048
     Dates: start: 201412, end: 20150307
  3. NORTHERA [Suspect]
     Active Substance: DROXIDOPA
     Indication: PARKINSON^S DISEASE

REACTIONS (5)
  - Drug ineffective [Unknown]
  - Dementia [Recovering/Resolving]
  - Disorientation [Unknown]
  - Blood pressure fluctuation [Unknown]
  - Insomnia [Unknown]

NARRATIVE: CASE EVENT DATE: 201412
